FAERS Safety Report 5056142-3 (Version None)
Quarter: 2006Q3

REPORT INFORMATION
  Report Type: 
  Country: None (occurrence: None)
  Receive Date: 20060720
  Receipt Date: 20060619
  Transmission Date: 20061208
  Serious: Yes (Other)
  Sender: FDA-Public Use
  Company Number: JP-JPN-A200602164

PATIENT
  Age: 72 Year
  Sex: Female

DRUGS (5)
  1. ZANTAC [Suspect]
     Dosage: 300MG PER DAY
     Route: 048
     Dates: start: 20050415
  2. MEVALOTIN [Suspect]
     Dosage: 5MG PER DAY
     Route: 048
     Dates: start: 20050930, end: 20060619
  3. ASPIRIN [Suspect]
     Dosage: 100MG PER DAY
     Route: 048
     Dates: start: 20050415
  4. MUCOSTA [Suspect]
     Dosage: 100MG THREE TIMES PER DAY
     Route: 048
     Dates: start: 20050415
  5. ARTIST [Suspect]
     Indication: HYPERTENSION
     Dosage: 20MG PER DAY
     Route: 048
     Dates: start: 20050415

REACTIONS (7)
  - APTYALISM [None]
  - DYSGEUSIA [None]
  - FEELING HOT [None]
  - NASAL MUCOSA ATROPHY [None]
  - ORAL MUCOSA ATROPHY [None]
  - THIRST [None]
  - TONGUE DRY [None]
